FAERS Safety Report 17681515 (Version 1)
Quarter: 2020Q3

REPORT INFORMATION
  Report Type: Report from Study
  Country: IN (occurrence: IN)
  Receive Date: 20200417
  Receipt Date: 20200417
  Transmission Date: 20201105
  Serious: Yes (Hospitalization)
  Sender: FDA-Public Use
  Company Number: NVSC2020IN008235

PATIENT
  Age: 55 Year
  Sex: Male
  Weight: 68 kg

DRUGS (4)
  1. GLYCOMET TRIO [Concomitant]
     Indication: DIABETES MELLITUS
     Dosage: 1 DF, BID (1?0?1)
     Route: 048
  2. GALVUS [Suspect]
     Active Substance: VILDAGLIPTIN
     Indication: PRODUCT USED FOR UNKNOWN INDICATION
     Dosage: 50 MG
     Route: 065
     Dates: start: 2017, end: 201908
  3. SABOTAZ [Concomitant]
     Indication: PRODUCT USED FOR UNKNOWN INDICATION
     Dosage: UNK
     Route: 065
  4. GALVUS MET [Suspect]
     Active Substance: METFORMIN HYDROCHLORIDE\VILDAGLIPTIN
     Indication: DIABETES MELLITUS
     Dosage: 1 DF, BID (1?0?1, PRE MEAL)
     Route: 048
     Dates: start: 20191001

REACTIONS (3)
  - Hypertension [Unknown]
  - Blood uric acid increased [Unknown]
  - Hyperglycaemia [Unknown]

NARRATIVE: CASE EVENT DATE: 2018
